FAERS Safety Report 8906230 (Version 1)
Quarter: 2012Q4

REPORT INFORMATION
  Report Type: Spontaneous
  Country: US (occurrence: None)
  Receive Date: 20121112
  Receipt Date: 20121112
  Transmission Date: 20130627
  Serious: No
  Sender: FDA-Public Use
  Company Number: None

PATIENT
  Age: 56 Year
  Sex: Female
  Weight: 54.89 kg

DRUGS (2)
  1. ATORVASTATIN [Suspect]
     Indication: HYPERLIPIDEMIA
     Dosage: 80 mg  once daily  po
     Route: 048
     Dates: start: 20120912, end: 20121021
  2. ATORVASTATIN [Suspect]
     Indication: TYPE 2 DIABETES MELLITUS
     Dosage: 80 mg  once daily  po
     Route: 048
     Dates: start: 20120912, end: 20121021

REACTIONS (5)
  - Hepatitis A antibody positive [None]
  - Pyrexia [None]
  - Nausea [None]
  - Vomiting [None]
  - Headache [None]
